FAERS Safety Report 16063343 (Version 6)
Quarter: 2019Q4

REPORT INFORMATION
  Report Type: Spontaneous
  Country: US (occurrence: US)
  Receive Date: 20190312
  Receipt Date: 20191030
  Transmission Date: 20200122
  Serious: Yes (Life-Threatening, Other)
  Sender: FDA-Public Use
  Company Number: US-PFIZER INC-2019103134

PATIENT
  Age: 53 Year
  Sex: Female
  Weight: 56.7 kg

DRUGS (11)
  1. LYRICA [Suspect]
     Active Substance: PREGABALIN
     Indication: NERVE INJURY
     Dosage: 75 MG, 3X/DAY
     Route: 048
     Dates: start: 2018
  2. LYRICA [Suspect]
     Active Substance: PREGABALIN
     Indication: NEUROPATHY PERIPHERAL
     Dosage: 75 MG, 3X/DAY
  3. LYRICA [Suspect]
     Active Substance: PREGABALIN
     Indication: MUSCLE SPASMS
  4. LYRICA [Suspect]
     Active Substance: PREGABALIN
     Indication: RHEUMATOID ARTHRITIS
  5. CLOZAPINE. [Concomitant]
     Active Substance: CLOZAPINE
     Indication: SLEEP DISORDER
     Dosage: 1 DF, DAILY
  6. LYRICA [Suspect]
     Active Substance: PREGABALIN
     Indication: FIBROMYALGIA
     Dosage: 100 MG, UNK
     Route: 048
  7. CLONAZEPAM. [Concomitant]
     Active Substance: CLONAZEPAM
     Indication: SEIZURE
     Dosage: 2 MG, 3X/DAY
  8. LYRICA [Suspect]
     Active Substance: PREGABALIN
     Indication: FRACTURE
  9. LYRICA [Suspect]
     Active Substance: PREGABALIN
     Indication: MULTIPLE SCLEROSIS
  10. LYRICA [Suspect]
     Active Substance: PREGABALIN
     Indication: INTERVERTEBRAL DISC INJURY
     Dosage: 100 MG, 3X/DAY
  11. LYRICA [Suspect]
     Active Substance: PREGABALIN
     Indication: RHEUMATIC DISORDER
     Dosage: 75 MG, 4X/DAY
     Route: 048

REACTIONS (18)
  - Seizure [Unknown]
  - Product dose omission [Unknown]
  - Emotional distress [Unknown]
  - Body height decreased [Unknown]
  - Movement disorder [Unknown]
  - Bone disorder [Unknown]
  - Tongue haemorrhage [Unknown]
  - Pain [Unknown]
  - Swelling face [Unknown]
  - Weight increased [Unknown]
  - Dyspnoea [Unknown]
  - Drug ineffective [Unknown]
  - Osteoporosis [Unknown]
  - Bladder prolapse [Unknown]
  - Drug hypersensitivity [Unknown]
  - Feeling cold [Unknown]
  - Cystitis [Unknown]
  - Kidney infection [Unknown]
